FAERS Safety Report 9403093 (Version 3)
Quarter: 2014Q1

REPORT INFORMATION
  Report Type: Spontaneous
  Country: US (occurrence: US)
  Receive Date: 20130716
  Receipt Date: 20140203
  Transmission Date: 20141002
  Serious: Yes (Hospitalization)
  Sender: FDA-Public Use
  Company Number: US-GLAXOSMITHKLINE-A1033359A

PATIENT
  Age: 64 Year
  Sex: Male

DRUGS (1)
  1. AVANDIA [Suspect]
     Indication: DIABETES MELLITUS
     Route: 048
     Dates: start: 2004, end: 2009

REACTIONS (6)
  - Myocardial infarction [Unknown]
  - Pulmonary oedema [Unknown]
  - Cardiac failure congestive [Unknown]
  - Hypertension [Unknown]
  - Ischaemic cardiomyopathy [Unknown]
  - Angina pectoris [Unknown]
